FAERS Safety Report 8850264 (Version 2)
Quarter: 2012Q4

REPORT INFORMATION
  Report Type: Report from Study
  Country: US (occurrence: US)
  Receive Date: 20121019
  Receipt Date: 20121025
  Transmission Date: 20130627
  Serious: Yes (Congenital Anomaly)
  Sender: FDA-Public Use
  Company Number: US-GILEAD-2012-0063133

PATIENT
  Sex: Male

DRUGS (7)
  1. EMTRICITABINE/TENOFOVIR DISOPROXIL FUMARATE [Suspect]
     Indication: HIV INFECTION
     Dosage: UNK
     Dates: start: 20120620, end: 20120915
  2. PCP [Suspect]
     Indication: SUBSTANCE ABUSE
     Dosage: UNK
     Dates: start: 20120123, end: 20120915
  3. BENZODIAZEPINE DERIVATIVES [Suspect]
     Indication: SUBSTANCE ABUSE
     Dosage: UNK
     Dates: start: 20120123, end: 20120915
  4. OPIATES [Suspect]
     Indication: SUBSTANCE ABUSE
     Dosage: UNK
     Dates: start: 20120123, end: 20120915
  5. PREZISTA [Concomitant]
     Dosage: UNK
     Route: 064
     Dates: start: 20120620, end: 20120915
  6. NORVIR [Concomitant]
     Dosage: UNK
     Route: 064
     Dates: start: 20120620, end: 20120915
  7. RETROVIR [Concomitant]
     Dosage: UNK
     Route: 064
     Dates: start: 20120915, end: 20120915

REACTIONS (3)
  - Polydactyly [Unknown]
  - Premature baby [None]
  - Maternal drugs affecting foetus [None]
